FAERS Safety Report 7815619-5 (Version None)
Quarter: 2011Q4

REPORT INFORMATION
  Report Type: 
  Country: None (occurrence: None)
  Receive Date: 20111014
  Receipt Date: 20111012
  Transmission Date: 20120403
  Serious: Yes (Other)
  Sender: FDA-Public Use
  Company Number: US-ABBOTT-11P-163-0856099-00

PATIENT
  Sex: Male

DRUGS (5)
  1. BENADRYL [Concomitant]
     Indication: INSOMNIA
  2. HUMIRA [Suspect]
     Indication: PSORIASIS
     Route: 058
     Dates: start: 20100212, end: 20100521
  3. HUMIRA [Suspect]
  4. BENADRYL [Concomitant]
     Indication: PRURITUS
     Dosage: 1 PILL
     Route: 048
  5. UNKNOWN VITAMIN [Concomitant]
     Indication: VITAMIN SUPPLEMENTATION
     Dosage: DAILY

REACTIONS (7)
  - TOOTH FRACTURE [None]
  - TOOTH DISORDER [None]
  - STRESS [None]
  - CYST [None]
  - PSORIASIS [None]
  - MEMORY IMPAIRMENT [None]
  - TOOTHACHE [None]
